FAERS Safety Report 5407504-3 (Version None)
Quarter: 2007Q3

REPORT INFORMATION
  Report Type: 
  Country: None (occurrence: None)
  Receive Date: 20070703
  Receipt Date: 20070726
  Transmission Date: 20080115
  Serious: Yes (Hospitalization)
  Sender: FDA-Public Use
  Company Number: 2007SP012381

PATIENT
  Age: 69 Year
  Sex: Female
  Weight: 51 kg

DRUGS (10)
  1. TEMOZOLOMIDE [Suspect]
     Indication: GLIOBLASTOMA
     Dosage: 115 MG; QD
     Dates: start: 20070603, end: 20070618
  2. CILAZAPRIL [Concomitant]
  3. DILTIAZEM [Concomitant]
  4. EZETIMIBE [Concomitant]
  5. FAMOTIDINE [Concomitant]
  6. GLYBURIDE [Concomitant]
  7. METFORMIN HCL [Concomitant]
  8. DEXAMETHASONE 0.5MG TAB [Concomitant]
  9. HYDROCHLOROTHIAZIDE [Concomitant]
  10. NEFEDIPINE [Concomitant]

REACTIONS (6)
  - ACTIVITIES OF DAILY LIVING IMPAIRED [None]
  - CARDIAC FAILURE CONGESTIVE [None]
  - DYSSTASIA [None]
  - GENERAL PHYSICAL HEALTH DETERIORATION [None]
  - MENINGITIS BACTERIAL [None]
  - UPPER RESPIRATORY TRACT INFECTION [None]
